FAERS Safety Report 10230841 (Version 1)
Quarter: 2014Q2

REPORT INFORMATION
  Report Type: Spontaneous
  Country: US (occurrence: US)
  Receive Date: 20140611
  Receipt Date: 20140611
  Transmission Date: 20141212
  Serious: No
  Sender: FDA-Public Use
  Company Number: US-BAYER-2014-077552

PATIENT
  Age: 88 Year
  Sex: Female

DRUGS (2)
  1. CIPRO 10% ORAL SUSPENSION [Suspect]
     Route: 048
  2. JEVITY [Interacting]

REACTIONS (2)
  - Drug interaction [None]
  - Therapeutic product ineffective [None]
